FAERS Safety Report 7006051-5 (Version None)
Quarter: 2010Q3

REPORT INFORMATION
  Report Type: 
  Country: None (occurrence: None)
  Receive Date: 20100921
  Receipt Date: 20100907
  Transmission Date: 20110219
  Serious: Yes (Other)
  Sender: FDA-Public Use
  Company Number: IT-MYLANLABS-2010S1016387

PATIENT
  Age: 14 Year
  Sex: Male

DRUGS (2)
  1. MERCAPTOPURINE [Suspect]
     Indication: CROHN'S DISEASE
     Route: 048
     Dates: start: 20010601
  2. TUMOR NECROSIS FACTOR ALPHA (TNF-ALPHA) INHIB [Suspect]
     Indication: CROHN'S DISEASE
     Dosage: WEEKLY TNF-ALPHA-INHIBITOR (100MG)
     Route: 042
     Dates: start: 20030401

REACTIONS (1)
  - MYELODYSPLASTIC SYNDROME [None]
